FAERS Safety Report 11858627 (Version 1)
Quarter: 2015Q4

REPORT INFORMATION
  Report Type: Spontaneous
  Country: CA (occurrence: CA)
  Receive Date: 20151222
  Receipt Date: 20151222
  Transmission Date: 20160305
  Serious: Yes (Other)
  Sender: FDA-Public Use
  Company Number: CA-BAYER-2015-486587

PATIENT

DRUGS (2)
  1. LOSEC [Concomitant]
     Active Substance: OMEPRAZOLE
     Indication: HIATUS HERNIA
     Dosage: UNK
  2. RESTORALAX [Suspect]
     Active Substance: POLYETHYLENE GLYCOL 3350

REACTIONS (6)
  - Irritable bowel syndrome [None]
  - Arthralgia [None]
  - Intestinal haemorrhage [None]
  - Pain in extremity [None]
  - Drug ineffective [None]
  - Underdose [None]
